FAERS Safety Report 9687861 (Version 1)
Quarter: 2013Q4

REPORT INFORMATION
  Report Type: Spontaneous
  Country: US (occurrence: None)
  Receive Date: 20131113
  Receipt Date: 20131113
  Transmission Date: 20140711
  Serious: Yes (Hospitalization, Other)
  Sender: FDA-Public Use
  Company Number: None

PATIENT
  Age: 27 Year
  Sex: Female
  Weight: 108.41 kg

DRUGS (2)
  1. NICOTROL INHALER [Suspect]
     Indication: SMOKING CESSATION THERAPY
     Dosage: 10 MG CARTRIDGE (4-12 DAYS)
     Dates: start: 20130701, end: 20131019
  2. GLYBURIDE 1.25 MG [Concomitant]

REACTIONS (3)
  - Gestational diabetes [None]
  - Exposure during pregnancy [None]
  - Passive smoking [None]
